FAERS Safety Report 7800221-1 (Version None)
Quarter: 2011Q4

REPORT INFORMATION
  Report Type: 
  Country: None (occurrence: None)
  Receive Date: 20111004
  Receipt Date: 20110926
  Transmission Date: 20120403
  Serious: Yes (Hospitalization)
  Sender: FDA-Public Use
  Company Number: 2011SP042454

PATIENT
  Sex: Female

DRUGS (1)
  1. IMPLANON [Suspect]
     Indication: CONTRACEPTION
     Dosage: SBDE
     Route: 059

REACTIONS (3)
  - STILLBIRTH [None]
  - ABORTION INDUCED [None]
  - PREGNANCY WITH IMPLANT CONTRACEPTIVE [None]
